FAERS Safety Report 22039920 (Version 1)
Quarter: 2023Q1

REPORT INFORMATION
  Report Type: Spontaneous
  Country: US (occurrence: US)
  Receive Date: 20230227
  Receipt Date: 20230227
  Transmission Date: 20230417
  Serious: No
  Sender: FDA-Public Use
  Company Number: US-SA-SAC20230224000825

PATIENT
  Sex: Female

DRUGS (1)
  1. DUPIXENT [Suspect]
     Active Substance: DUPILUMAB
     Indication: Dermatitis allergic
     Dosage: 300MG, FREQUENCY: OTHER
     Route: 058
     Dates: start: 20211213, end: 20230218

REACTIONS (4)
  - Pruritus [Unknown]
  - Dizziness [Unknown]
  - Rash macular [Unknown]
  - Product dose omission issue [Unknown]
